FAERS Safety Report 7465979-2 (Version None)
Quarter: 2011Q2

REPORT INFORMATION
  Report Type: 
  Country: None (occurrence: None)
  Receive Date: 20110509
  Receipt Date: 20100601
  Transmission Date: 20111010
  Serious: No
  Sender: FDA-Public Use
  Company Number: US-ALEXION-A201000621

PATIENT
  Sex: Female

DRUGS (14)
  1. HYDROCODONE BITARTRATE AND ACETAMINOPHEN [Concomitant]
  2. SOLIRIS [Suspect]
     Indication: PAROXYSMAL NOCTURNAL HAEMOGLOBINURIA
     Dosage: UNK
     Route: 042
     Dates: start: 20090507
  3. CYCLOBENZAPRINE [Concomitant]
     Dosage: 10 MG, BID
  4. METOPROLOL TARTRATE [Concomitant]
     Dosage: 50 MG, BID
  5. OMEPRAZOLE [Concomitant]
     Dosage: 20 MG, QD
  6. SYNTHROID [Concomitant]
     Dosage: 75 UG, QD
  7. FOLIC ACID [Concomitant]
     Dosage: 1 MG, QD
  8. PREDNISONE [Concomitant]
     Dosage: 5 MG, QD
  9. SOLIRIS [Suspect]
     Dosage: 900 MG, Q2W
     Route: 042
  10. FERROUS SULFATE TAB [Concomitant]
     Dosage: 325 MG, BID
  11. ALENDRONATE SODIUM [Concomitant]
     Dosage: 70 MG, QW
  12. ENALAPRIL MALEATE [Concomitant]
     Dosage: 10 MG, QD
  13. HYDROCHLOROTHIAZIDE [Concomitant]
     Dosage: 25 MG, BID
  14. ASPIRIN [Concomitant]

REACTIONS (3)
  - FATIGUE [None]
  - PAIN IN EXTREMITY [None]
  - OEDEMA [None]
